FAERS Safety Report 4767043-X (Version None)
Quarter: 2005Q3

REPORT INFORMATION
  Report Type: 
  Country: None (occurrence: None)
  Receive Date: 20050909
  Receipt Date: 20050606
  Transmission Date: 20060218
  Serious: Yes (Hospitalization)
  Sender: FDA-Public Use
  Company Number: 010

PATIENT
  Sex: Female
  Weight: 90.7194 kg

DRUGS (9)
  1. FAZACLO ODT [Suspect]
     Indication: SCHIZOPHRENIA
     Dosage: 75MG HS
     Dates: start: 20050117
  2. NAVANE [Concomitant]
  3. COGENTIN [Concomitant]
  4. RELAFEN [Concomitant]
  5. METFORMIN [Concomitant]
  6. GLIPIZIDE [Concomitant]
  7. DEPAKOTE [Concomitant]
  8. LISINOPRIL [Concomitant]
  9. PREVACID [Concomitant]

REACTIONS (2)
  - SINUS TACHYCARDIA [None]
  - VENTRICULAR EXTRASYSTOLES [None]
